FAERS Safety Report 14092937 (Version 1)
Quarter: 2017Q4

REPORT INFORMATION
  Report Type: Spontaneous
  Country: SE (occurrence: SE)
  Receive Date: 20171016
  Receipt Date: 20171016
  Transmission Date: 20180321
  Serious: Yes (Hospitalization)
  Sender: FDA-Public Use
  Company Number: SE-TEVA-814387ISR

PATIENT
  Age: 56 Year
  Sex: Male

DRUGS (1)
  1. MIRTAZAPIN [Suspect]
     Active Substance: MIRTAZAPINE
     Route: 048

REACTIONS (1)
  - Psychotic symptom [Recovered/Resolved]
